FAERS Safety Report 16932765 (Version 1)
Quarter: 2019Q4

REPORT INFORMATION
  Report Type: Spontaneous
  Country: US (occurrence: US)
  Receive Date: 20191018
  Receipt Date: 20191018
  Transmission Date: 20200122
  Serious: No
  Sender: FDA-Public Use
  Company Number: US-GLAXOSMITHKLINE-US2019186671

PATIENT
  Age: 64 Year
  Sex: Female

DRUGS (1)
  1. FLONASE [Suspect]
     Active Substance: FLUTICASONE PROPIONATE
     Indication: NASAL PRURITUS
     Dosage: UNK, PRN

REACTIONS (2)
  - Inappropriate schedule of product administration [Unknown]
  - Expired product administered [Unknown]
